FAERS Safety Report 4897889-9 (Version None)
Quarter: 2006Q1

REPORT INFORMATION
  Report Type: 
  Country: None (occurrence: None)
  Receive Date: 20060201
  Receipt Date: 20060103
  Transmission Date: 20060701
  Serious: Yes (Hospitalization)
  Sender: FDA-Public Use
  Company Number: US-MERCK-0601USA00214

PATIENT
  Age: 68 Year
  Sex: Female

DRUGS (6)
  1. VYTORIN [Suspect]
     Indication: HYPERCHOLESTEROLAEMIA
     Route: 048
     Dates: start: 20050914, end: 20051201
  2. VYTORIN [Suspect]
     Indication: HYPERLIPIDAEMIA
     Route: 048
     Dates: start: 20050914, end: 20051201
  3. AVAPRO [Concomitant]
     Route: 065
     Dates: end: 20050101
  4. HYDRODIURIL [Concomitant]
     Route: 048
     Dates: end: 20050101
  5. TEA (AS DRUG) [Concomitant]
     Route: 065
  6. FOSAMAX [Concomitant]
     Route: 048

REACTIONS (5)
  - ALANINE AMINOTRANSFERASE INCREASED [None]
  - ANGIONEUROTIC OEDEMA [None]
  - ASPARTATE AMINOTRANSFERASE INCREASED [None]
  - BLOOD BILIRUBIN INCREASED [None]
  - SYNCOPE [None]
